FAERS Safety Report 15320734 (Version 1)
Quarter: 2018Q3

REPORT INFORMATION
  Report Type: Spontaneous
  Country: US (occurrence: US)
  Receive Date: 20180821
  Receipt Date: 20180821
  Transmission Date: 20181010
  Serious: Yes (Hospitalization)
  Sender: FDA-Public Use
  Company Number: None

PATIENT
  Sex: Female

DRUGS (3)
  1. TRILEPTAL [Concomitant]
     Active Substance: OXCARBAZEPINE
  2. KEPPRA [Concomitant]
     Active Substance: LEVETIRACETAM
  3. REXULTI [Suspect]
     Active Substance: BREXPIPRAZOLE
     Indication: AFFECTIVE DISORDER
     Route: 048

REACTIONS (2)
  - Productive cough [None]
  - Movement disorder [None]

NARRATIVE: CASE EVENT DATE: 20180816
